FAERS Safety Report 4823438-7 (Version None)
Quarter: 2005Q4

REPORT INFORMATION
  Report Type: 
  Country: None (occurrence: None)
  Receive Date: 20051107
  Receipt Date: 20051020
  Transmission Date: 20060501
  Serious: No
  Sender: FDA-Public Use
  Company Number: DE-2005-021054

PATIENT
  Age: 42 Year
  Sex: Male
  Weight: 85 kg

DRUGS (2)
  1. BETAFERON (INTERFERON BETA -1B) INJECTION, 250?G [Suspect]
     Indication: RELAPSING-REMITTING MULTIPLE SCLEROSIS
     Dosage: INCREASING DOSE, SUBCUTANEOUS
     Route: 058
     Dates: start: 20050926
  2. IBUPROFEN [Concomitant]

REACTIONS (3)
  - CONJUNCTIVAL HAEMORRHAGE [None]
  - DRY EYE [None]
  - VITREOUS HAEMORRHAGE [None]
